FAERS Safety Report 20826195 (Version 1)
Quarter: 2022Q2

REPORT INFORMATION
  Report Type: Spontaneous
  Country: US (occurrence: US)
  Receive Date: 20220513
  Receipt Date: 20220513
  Transmission Date: 20220720
  Serious: Yes (Other)
  Sender: FDA-Public Use
  Company Number: US-ORG100016242-2022000814

PATIENT
  Age: 15 Year
  Sex: Female

DRUGS (13)
  1. EXPAREL [Suspect]
     Active Substance: BUPIVACAINE
     Indication: Postoperative analgesia
     Route: 065
  2. BUPIVACAINE [Suspect]
     Active Substance: BUPIVACAINE
     Indication: Postoperative analgesia
     Route: 065
  3. SODIUM CHLORIDE [Concomitant]
     Active Substance: SODIUM CHLORIDE
     Indication: Postoperative analgesia
     Dosage: 1:14 DILUTION MIXED WITH LB AND 0.25% BUPIVACAINE
     Route: 065
  4. DEXAMETHASONE [Concomitant]
     Active Substance: DEXAMETHASONE
     Indication: Prophylaxis of nausea and vomiting
     Route: 042
  5. HYDROMORPHONE [Concomitant]
     Active Substance: HYDROMORPHONE
     Indication: Postoperative care
     Route: 042
  6. OXYCODONE [Concomitant]
     Active Substance: OXYCODONE
     Indication: Postoperative care
     Dosage: NOT PROVIDED
     Route: 048
  7. HYDROCODONE [Concomitant]
     Active Substance: HYDROCODONE
     Indication: Postoperative care
     Dosage: NOT PROVIDED
     Route: 048
  8. KETOROLAC [Concomitant]
     Active Substance: KETOROLAC TROMETHAMINE
     Indication: Postoperative care
     Dosage: EVERY 6 HOURS FOR 24 HOURS
     Route: 042
  9. IBUPROFEN [Concomitant]
     Active Substance: IBUPROFEN
     Indication: Postoperative care
     Dosage: NOT PROVIDED
     Route: 048
  10. ACETAMINOPHEN [Concomitant]
     Active Substance: ACETAMINOPHEN
     Indication: Postoperative care
     Dosage: EVERY 6 HOURS FOR 24 HOURS
     Route: 042
  11. ACETAMINOPHEN [Concomitant]
     Active Substance: ACETAMINOPHEN
     Indication: Postoperative care
     Dosage: NOT PROVIDED
     Route: 048
  12. DIAZEPAM [Concomitant]
     Active Substance: DIAZEPAM
     Indication: Muscle spasms
     Dosage: NOT PROVIDED
     Route: 048
  13. DEXMEDETOMIDINE [Concomitant]
     Active Substance: DEXMEDETOMIDINE
     Indication: Postoperative analgesia
     Dosage: LOW DOSE
     Route: 065

REACTIONS (2)
  - Procedural pneumothorax [Unknown]
  - Off label use [Unknown]
